FAERS Safety Report 7980633-6 (Version None)
Quarter: 2011Q4

REPORT INFORMATION
  Report Type: 
  Country: None (occurrence: None)
  Receive Date: 20111214
  Receipt Date: 20111209
  Transmission Date: 20120403
  Serious: Yes (Death, Hospitalization, Other)
  Sender: FDA-Public Use
  Company Number: TW-PFIZER INC-2011300243

PATIENT
  Age: 57 Year
  Sex: Male
  Weight: 62 kg

DRUGS (9)
  1. ALFUZOSIN [Concomitant]
     Indication: URINARY RETENTION
     Dosage: UNK
     Dates: start: 20111207, end: 20111207
  2. URECHOLINE [Concomitant]
     Indication: URINARY RETENTION
     Dosage: UNK
     Dates: start: 20111207, end: 20111207
  3. DEXTROMETHORPHAN [Concomitant]
     Indication: NASOPHARYNGITIS
     Dosage: UNK
     Dates: start: 20111205, end: 20111205
  4. PHENAZOPYRIDINE HCL TAB [Suspect]
     Indication: URINARY RETENTION
     Dosage: SINGLE DOSE
     Route: 048
     Dates: start: 20111207, end: 20111207
  5. AMOXICILLIN [Suspect]
     Indication: NASOPHARYNGITIS
     Dosage: 500 MG, SINGLE
     Route: 048
     Dates: start: 20111205, end: 20111205
  6. CLINDAMYCIN [Suspect]
     Indication: NASOPHARYNGITIS
     Dosage: 150 MG, SINGLE
     Route: 048
     Dates: start: 20111205, end: 20111205
  7. PROSULTIAMINE W/RIBOFLAVIN/ [Concomitant]
     Indication: URINARY RETENTION
     Dosage: UNK
     Dates: start: 20111207, end: 20111207
  8. CRIZOTINIB [Suspect]
     Indication: NON-SMALL CELL LUNG CANCER
     Dosage: 250 MG TWICW DAILY
     Route: 048
     Dates: start: 20111103, end: 20111208
  9. LYSOZYME [Concomitant]
     Indication: NASOPHARYNGITIS
     Dosage: UNK
     Dates: start: 20111205, end: 20111205

REACTIONS (8)
  - DECREASED APPETITE [None]
  - ALANINE AMINOTRANSFERASE INCREASED [None]
  - URINARY RETENTION [None]
  - LIVER INJURY [None]
  - ASPARTATE AMINOTRANSFERASE INCREASED [None]
  - HEPATIC FAILURE [None]
  - BLOOD ALKALINE PHOSPHATASE INCREASED [None]
  - BLOOD BILIRUBIN INCREASED [None]
